FAERS Safety Report 5674904-6 (Version None)
Quarter: 2008Q1

REPORT INFORMATION
  Report Type: 
  Country: None (occurrence: None)
  Receive Date: 20080320
  Receipt Date: 20080313
  Transmission Date: 20080703
  Serious: Yes (Hospitalization)
  Sender: FDA-Public Use
  Company Number: FR-PFIZER INC-2008023426

PATIENT
  Sex: Female

DRUGS (5)
  1. SOLU-MEDROL [Suspect]
     Indication: PREMEDICATION
     Route: 042
  2. ZOPHREN [Suspect]
     Indication: PREMEDICATION
     Route: 042
  3. POLARAMINE [Suspect]
     Indication: PREMEDICATION
     Route: 042
  4. RANIPLEX [Suspect]
     Indication: PREMEDICATION
     Route: 042
  5. TAXOL [Concomitant]
     Indication: BREAST CANCER

REACTIONS (6)
  - ANAPHYLACTIC SHOCK [None]
  - HYPOTENSION [None]
  - HYPOXIA [None]
  - OEDEMA [None]
  - PULMONARY OEDEMA [None]
  - RESPIRATORY ACIDOSIS [None]
